FAERS Safety Report 12460754 (Version 1)
Quarter: 2016Q2

REPORT INFORMATION
  Report Type: Spontaneous
  Country: US (occurrence: US)
  Receive Date: 20160613
  Receipt Date: 20160613
  Transmission Date: 20160815
  Serious: Yes (Other)
  Sender: FDA-Public Use
  Company Number: US-INFIRST HEALTHCARE LTD.-INF-001053-2016

PATIENT
  Age: 8 Day
  Sex: Female

DRUGS (1)
  1. INFANTS MYLICON [Suspect]
     Active Substance: DIMETHICONE
     Indication: PRODUCT USED FOR UNKNOWN INDICATION
     Dosage: UNK
     Route: 065

REACTIONS (4)
  - Gastrointestinal sounds abnormal [Unknown]
  - Flatulence [Unknown]
  - Crying [Unknown]
  - Diarrhoea neonatal [Unknown]
